FAERS Safety Report 5711531-6 (Version None)
Quarter: 2008Q2

REPORT INFORMATION
  Report Type: 
  Country: None (occurrence: None)
  Receive Date: 20080418
  Receipt Date: 20080418
  Transmission Date: 20081010
  Serious: Yes (Other)
  Sender: FDA-Public Use
  Company Number: None

PATIENT
  Sex: Female
  Weight: 108.8633 kg

DRUGS (1)
  1. MIRENA [Suspect]
     Indication: CONTRACEPTION
     Dosage: 5 YEARS INTRA-UTERI
     Route: 015
     Dates: start: 20080127

REACTIONS (7)
  - BACK PAIN [None]
  - DYSMENORRHOEA [None]
  - ILL-DEFINED DISORDER [None]
  - IMPATIENCE [None]
  - MENSTRUATION IRREGULAR [None]
  - MOOD SWINGS [None]
  - PREMENSTRUAL SYNDROME [None]
